FAERS Safety Report 9312376 (Version 3)
Quarter: 2013Q3

REPORT INFORMATION
  Report Type: Report from Study
  Country: US (occurrence: US)
  Receive Date: 20130528
  Receipt Date: 20130719
  Transmission Date: 20140515
  Serious: Yes (Hospitalization, Other)
  Sender: FDA-Public Use
  Company Number: US-ABBOTT-13P-163-1093250-00

PATIENT
  Age: 46 Year
  Sex: Female

DRUGS (7)
  1. HUMIRA [Suspect]
     Indication: COLITIS ULCERATIVE
     Dates: start: 20130208, end: 20130606
  2. ASACOL [Concomitant]
     Indication: COLITIS ULCERATIVE
     Dosage: 800 MG TABLETS (X6) DAILY
  3. CANASA [Concomitant]
     Indication: COLITIS ULCERATIVE
  4. OMEPRAZOLE [Concomitant]
     Indication: GASTROOESOPHAGEAL REFLUX DISEASE
  5. PROPRANOLOL [Concomitant]
     Indication: MIGRAINE PROPHYLAXIS
  6. FLUOXETINE [Concomitant]
     Indication: DEPRESSION
  7. IRON [Concomitant]
     Indication: ANAEMIA

REACTIONS (5)
  - Uterine leiomyoma [Not Recovered/Not Resolved]
  - Abdominal pain upper [Unknown]
  - Back pain [Not Recovered/Not Resolved]
  - Kidney infection [Not Recovered/Not Resolved]
  - Ovarian cyst [Not Recovered/Not Resolved]
